FAERS Safety Report 9121055 (Version 1)
Quarter: 2013Q1

REPORT INFORMATION
  Report Type: Spontaneous
  Country: US (occurrence: US)
  Receive Date: 20130226
  Receipt Date: 20130226
  Transmission Date: 20140127
  Serious: No
  Sender: FDA-Public Use
  Company Number: US-PFIZER INC-2013067073

PATIENT
  Age: 63 Year
  Sex: Female
  Weight: 55.78 kg

DRUGS (6)
  1. NEURONTIN [Suspect]
     Indication: NEUROPATHY PERIPHERAL
     Dosage: 100 MG IN MORNING AND 300 MG AT NIGHT
     Dates: start: 201211, end: 201301
  2. SYNTHROID [Concomitant]
     Indication: THYROID DISORDER
     Dosage: 0.1 MG, 1X/DAY
  3. CALCITRIOL [Concomitant]
     Indication: PARATHYROID DISORDER
     Dosage: 50 MG, 1X/DAY
  4. DEPAKOTE [Concomitant]
     Indication: MIGRAINE
     Dosage: UNK
  5. LYRICA [Concomitant]
     Indication: NEUROPATHY PERIPHERAL
     Dosage: 75 MG, 2X/DAY
     Dates: end: 201211
  6. LYRICA [Concomitant]
     Indication: MIGRAINE
     Dosage: UNK
     Dates: start: 201301

REACTIONS (1)
  - Drug ineffective [Unknown]
